FAERS Safety Report 24210170 (Version 2)
Quarter: 2024Q3

REPORT INFORMATION
  Report Type: Report from Study
  Country: CN (occurrence: CN)
  Receive Date: 20240814
  Receipt Date: 20240822
  Transmission Date: 20241016
  Serious: Yes (Death, Other)
  Sender: SANOFI AVENTIS
  Company Number: CN-SA-SAC20240812001657

PATIENT
  Age: 64 Year
  Sex: Female

DRUGS (12)
  1. OXALIPLATIN [Suspect]
     Active Substance: OXALIPLATIN
     Indication: Gastric cancer
     Dosage: 130 MG/M2, Q3W
     Route: 042
     Dates: start: 20181205, end: 20190226
  2. NIVOLUMAB [Suspect]
     Active Substance: NIVOLUMAB
     Indication: Gastric cancer
     Dosage: 360 MG, Q3W
     Route: 042
     Dates: start: 20181205
  3. CAPECITABINE [Concomitant]
     Active Substance: CAPECITABINE
     Indication: Gastric cancer
     Dosage: 1000 MG/M2, Q3W
     Route: 048
     Dates: start: 20181205
  4. BUCINNAZINE HYDROCHLORIDE [Concomitant]
     Active Substance: BUCINNAZINE HYDROCHLORIDE
     Dosage: UNK
     Route: 042
  5. OMEPRAZOLE [Concomitant]
     Active Substance: OMEPRAZOLE
     Route: 042
  6. SOMATOSTATIN [Concomitant]
     Active Substance: SOMATOSTATIN
     Dosage: UNK
     Route: 042
  7. IPILIMUMAB [Concomitant]
     Active Substance: IPILIMUMAB
     Dosage: UNK
  8. FLUOROURACIL [Concomitant]
     Active Substance: FLUOROURACIL
     Dosage: UNK
  9. ATROPINE [Concomitant]
     Active Substance: ATROPINE
     Dosage: UNK
  10. ELECTROLYTES NOS [Concomitant]
     Active Substance: ELECTROLYTES NOS
     Dosage: UNK
  11. ACETANILIDE [Concomitant]
     Active Substance: ACETANILIDE
     Dosage: UNK
  12. DIISOPROPYLAMINE DICHLOROACETATE [Concomitant]
     Dosage: UNK

REACTIONS (1)
  - Thrombosis mesenteric vessel [Fatal]

NARRATIVE: CASE EVENT DATE: 20190226
